FAERS Safety Report 10408521 (Version 1)
Quarter: 2014Q3

REPORT INFORMATION
  Report Type: Report from Study
  Country: CN (occurrence: CN)
  Receive Date: 20140826
  Receipt Date: 20140826
  Transmission Date: 20150326
  Serious: Yes (Other)
  Sender: FDA-Public Use
  Company Number: CN-ROCHE-1454623

PATIENT
  Sex: Female

DRUGS (1)
  1. HERCEPTIN [Suspect]
     Active Substance: TRASTUZUMAB
     Indication: BREAST CANCER
     Dosage: FIRST TIME 600 MG, LATER 450 MG
     Route: 041
     Dates: start: 20131225

REACTIONS (1)
  - Disease progression [Unknown]
